FAERS Safety Report 10655765 (Version 1)
Quarter: 2014Q4

REPORT INFORMATION
  Report Type: Spontaneous
  Country: US (occurrence: US)
  Receive Date: 20141216
  Receipt Date: 20141216
  Transmission Date: 20150529
  Serious: No
  Sender: FDA-Public Use
  Company Number: US-BAYER-2014-184716

PATIENT
  Age: 43 Year
  Sex: Female

DRUGS (1)
  1. MIRENA [Suspect]
     Active Substance: LEVONORGESTREL
     Indication: CONTRACEPTION
     Dosage: 20 MCG/24HR, CONT
     Route: 015
     Dates: start: 20130514, end: 20140623

REACTIONS (5)
  - Abdominal pain [None]
  - Device use error [None]
  - Breast tenderness [None]
  - Device issue [None]
  - Feeling abnormal [None]

NARRATIVE: CASE EVENT DATE: 201306
